FAERS Safety Report 20408308 (Version 1)
Quarter: 2022Q1

REPORT INFORMATION
  Report Type: Report from Study
  Country: US (occurrence: US)
  Receive Date: 20220201
  Receipt Date: 20220201
  Transmission Date: 20220423
  Serious: Yes (Disabling)
  Sender: FDA-Public Use
  Company Number: US-GILEAD-2022-0567305

PATIENT
  Age: 48 Year
  Sex: Male

DRUGS (1)
  1. SOFOSBUVIR\VELPATASVIR [Suspect]
     Active Substance: SOFOSBUVIR\VELPATASVIR
     Indication: Hepatitis C
     Dosage: 1 DOSAGE FORM, QD
     Route: 048
     Dates: start: 20220101, end: 20220118

REACTIONS (2)
  - Gastrooesophageal reflux disease [Unknown]
  - Vomiting [Unknown]

NARRATIVE: CASE EVENT DATE: 20220104
